FAERS Safety Report 9303046 (Version 1)
Quarter: 2013Q2

REPORT INFORMATION
  Report Type: Spontaneous
  Country: DE (occurrence: DE)
  Receive Date: 20130522
  Receipt Date: 20130522
  Transmission Date: 20140414
  Serious: Yes (Hospitalization, Other)
  Sender: FDA-Public Use
  Company Number: DE-TEVA-404674ISR

PATIENT
  Age: 64 Year
  Sex: Female
  Weight: 56.5 kg

DRUGS (2)
  1. PACLITAXEL [Suspect]
     Indication: MALIGNANT PERITONEAL NEOPLASM
     Route: 042
     Dates: start: 20130416
  2. CARBOPLATIN [Suspect]
     Indication: MALIGNANT PERITONEAL NEOPLASM
     Route: 042
     Dates: start: 20130416

REACTIONS (2)
  - Renal failure acute [Recovered/Resolved]
  - Dehydration [Unknown]
